FAERS Safety Report 5529062-5 (Version None)
Quarter: 2007Q4

REPORT INFORMATION
  Report Type: 
  Country: None (occurrence: None)
  Receive Date: 20071129
  Receipt Date: 20061205
  Transmission Date: 20080405
  Serious: No
  Sender: FDA-Public Use
  Company Number: A0623942A

PATIENT
  Age: 46 Year
  Sex: Female

DRUGS (2)
  1. BUPROPION HYDROCHLORIDE [Suspect]
     Indication: DEPRESSION
     Dosage: 150MG TWICE PER DAY
     Route: 048
     Dates: start: 20051001
  2. UNSPECIFIED MEDICATIONS [Concomitant]

REACTIONS (2)
  - DYSPEPSIA [None]
  - PHARMACEUTICAL PRODUCT COMPLAINT [None]
